FAERS Safety Report 6412598-2 (Version None)
Quarter: 2009Q4

REPORT INFORMATION
  Report Type: 
  Country: None (occurrence: None)
  Receive Date: 20091023
  Receipt Date: 20091012
  Transmission Date: 20100525
  Serious: Yes (Other)
  Sender: FDA-Public Use
  Company Number: PHEH2009US13624

PATIENT
  Sex: Male

DRUGS (4)
  1. TASIGNA [Suspect]
     Indication: CHRONIC MYELOID LEUKAEMIA
     Dosage: 400 MG, BID
     Dates: start: 20081001
  2. INSULIN [Concomitant]
  3. CRESTOR [Concomitant]
  4. METOPROLOL [Concomitant]

REACTIONS (4)
  - ARTERIAL BYPASS OPERATION [None]
  - GLOSSODYNIA [None]
  - IMPAIRED HEALING [None]
  - POST PROCEDURAL DRAINAGE [None]
